FAERS Safety Report 10535548 (Version 1)
Quarter: 2014Q4

REPORT INFORMATION
  Report Type: Spontaneous
  Country: US (occurrence: US)
  Receive Date: 20141022
  Receipt Date: 20141022
  Transmission Date: 20150529
  Serious: No
  Sender: FDA-Public Use
  Company Number: US-RECKITT BENCKISER PHARMACEUTICAL, INC-RB-59289-2013

PATIENT

DRUGS (5)
  1. BUPRENORPHINE GENERIC [Suspect]
     Active Substance: BUPRENORPHINE
     Indication: DRUG DEPENDENCE
     Dosage: MOTHER WAS CUTTING THE TABLETS TO ACHIEVE DOSING OF 4 MG TWICE DAILY
     Route: 064
     Dates: start: 201303, end: 20130907
  2. NICOTINE. [Suspect]
     Active Substance: NICOTINE
     Indication: NICOTINE DEPENDENCE
     Dosage: DOSING: MOTHER SMOKED 20 CIGARETTES DAILY
     Route: 064
     Dates: end: 20130907
  3. SUBOXONE [Suspect]
     Active Substance: BUPRENORPHINE HYDROCHLORIDE\NALOXONE HYDROCHLORIDE
     Dosage: SUBOXONE FILM; MOTHER WAS CUTTING THE FILM TO ACHEIVE DOSING OF 4 MG TWICE DAILY
     Route: 064
     Dates: end: 201303
  4. SUBOXONE [Suspect]
     Active Substance: BUPRENORPHINE HYDROCHLORIDE\NALOXONE HYDROCHLORIDE
     Indication: DRUG DEPENDENCE
     Dosage: SUBOXONE FILM
     Route: 064
     Dates: start: 201212
  5. PRENATAL VITAMINS [Suspect]
     Active Substance: VITAMINS
     Indication: PREGNANCY
     Route: 064
     Dates: end: 20130907

REACTIONS (2)
  - Macrosomia [Unknown]
  - Foetal exposure during pregnancy [Recovered/Resolved]

NARRATIVE: CASE EVENT DATE: 201212
